FAERS Safety Report 17105912 (Version 1)
Quarter: 2019Q4

REPORT INFORMATION
  Report Type: Spontaneous
  Country: JP (occurrence: JP)
  Receive Date: 20191203
  Receipt Date: 20191203
  Transmission Date: 20200122
  Serious: Yes (Hospitalization)
  Sender: FDA-Public Use
  Company Number: JP-PFIZER INC-2019514909

PATIENT
  Age: 55 Year
  Sex: Male
  Weight: 64 kg

DRUGS (2)
  1. CEFTRIAXONE SODIUM PFIZER [Suspect]
     Active Substance: CEFTRIAXONE SODIUM
     Indication: ENTERITIS
     Dosage: 2 G, UNK
     Dates: start: 20190803, end: 20190803
  2. CEFTRIAXONE SODIUM PFIZER [Suspect]
     Active Substance: CEFTRIAXONE SODIUM
     Dosage: 2 G, 2X/DAY
     Route: 041
     Dates: start: 20190804, end: 20190809

REACTIONS (4)
  - Abdominal tenderness [Recovered/Resolved]
  - Cholelithiasis [Recovered/Resolved]
  - Abdominal pain upper [Unknown]
  - Abdominal distension [Recovering/Resolving]

NARRATIVE: CASE EVENT DATE: 20190811
